FAERS Safety Report 8388715-4 (Version None)
Quarter: 2012Q2

REPORT INFORMATION
  Report Type: 
  Country: None (occurrence: None)
  Receive Date: 20120527
  Receipt Date: 20120501
  Transmission Date: 20120825
  Serious: No
  Sender: FDA-Public Use
  Company Number: US-BAYER-2012-047672

PATIENT

DRUGS (3)
  1. ASPIRIN [Suspect]
  2. NAPROXEN SODIUM [Suspect]
  3. IBUPROFEN [Suspect]

REACTIONS (1)
  - DRUG HYPERSENSITIVITY [None]
